FAERS Safety Report 20299961 (Version 2)
Quarter: 2022Q1

REPORT INFORMATION
  Report Type: Spontaneous
  Country: KR (occurrence: KR)
  Receive Date: 20220105
  Receipt Date: 20220119
  Transmission Date: 20220423
  Serious: Yes (Other)
  Sender: FDA-Public Use
  Company Number: KR-ASTELLAS-2021US049366

PATIENT
  Age: 80 Year
  Sex: Male

DRUGS (3)
  1. HARNAL [Suspect]
     Active Substance: TAMSULOSIN HYDROCHLORIDE
     Indication: Dysuria
     Dosage: 0.2 MG, QD, 0.2 MG, ONCE DAILY (BEFORE BED)
     Route: 065
  2. HARNAL [Suspect]
     Active Substance: TAMSULOSIN HYDROCHLORIDE
     Dosage: 0.2 MG, ONCE DAILY (BEFORE BED)
     Route: 065
     Dates: start: 20211220
  3. TAMSULOSIN HYDROCHLORIDE [Suspect]
     Active Substance: TAMSULOSIN HYDROCHLORIDE
     Indication: Dysuria
     Dosage: 1 DF QD (IN MORNING)
     Route: 065
     Dates: start: 20211208, end: 20211219

REACTIONS (4)
  - Hepatic cancer [Recovering/Resolving]
  - Dizziness [Recovered/Resolved]
  - Gastroenteritis [Recovered/Resolved]
  - Inappropriate schedule of product administration [Unknown]

NARRATIVE: CASE EVENT DATE: 20190901
